FAERS Safety Report 7122358-5 (Version None)
Quarter: 2010Q4

REPORT INFORMATION
  Report Type: 
  Country: None (occurrence: None)
  Receive Date: 20101124
  Receipt Date: 20101118
  Transmission Date: 20110411
  Serious: Yes (Life-Threatening, Hospitalization)
  Sender: FDA-Public Use
  Company Number: PHHY2010DE79213

PATIENT
  Sex: Female
  Weight: 48 kg

DRUGS (1)
  1. ACZ885 ACZ+ [Suspect]
     Indication: MUCKLE-WELLS SYNDROME
     Dosage: 150 MG DAILY
     Route: 058
     Dates: start: 20101101

REACTIONS (3)
  - HAEMOGLOBIN DECREASED [None]
  - HAEMOLYSIS [None]
  - TRANSFUSION [None]
